FAERS Safety Report 17925086 (Version 1)
Quarter: 2020Q2

REPORT INFORMATION
  Report Type: Report from Study
  Country: IE (occurrence: IE)
  Receive Date: 20200622
  Receipt Date: 20200622
  Transmission Date: 20200714
  Serious: Yes (Hospitalization)
  Sender: FDA-Public Use
  Company Number: IE-IPSEN BIOPHARMACEUTICALS, INC.-2020-08764

PATIENT
  Age: 67 Year
  Sex: Male

DRUGS (17)
  1. SOMATULINE AUTOGEL [Suspect]
     Active Substance: LANREOTIDE ACETATE
     Indication: PRODUCT USED FOR UNKNOWN INDICATION
     Dosage: FREQUENCY: AS PER PRESCRIPTION.
     Route: 058
     Dates: start: 20200415, end: 202005
  2. SERTRALINE [Concomitant]
     Active Substance: SERTRALINE HYDROCHLORIDE
     Route: 050
  3. BURINEX [Concomitant]
     Active Substance: BUMETANIDE
     Route: 050
  4. FLUCLOXACILLIN [Concomitant]
     Active Substance: FLUCLOXACILLIN
     Route: 050
  5. LERCANIDIPINE [Concomitant]
     Active Substance: LERCANIDIPINE
     Route: 050
  6. ALLOPURINOL. [Concomitant]
     Active Substance: ALLOPURINOL
     Route: 050
  7. LANTUS [Concomitant]
     Active Substance: INSULIN GLARGINE
     Dosage: 5 UNITS
     Route: 050
  8. GALFER [Concomitant]
     Active Substance: IRON
     Route: 050
  9. PANTOPRAZOLE [Concomitant]
     Active Substance: PANTOPRAZOLE
     Route: 050
  10. TAPENTADOL [Concomitant]
     Active Substance: TAPENTADOL
     Route: 050
  11. SOMATULINE AUTOGEL [Suspect]
     Active Substance: LANREOTIDE ACETATE
     Dosage: FREQUENCY: AS PER PRESCRIPTION.
     Route: 058
     Dates: start: 20200616
  12. TAMSULOSIN [Concomitant]
     Active Substance: TAMSULOSIN
     Route: 050
  13. WARFARIN [Concomitant]
     Active Substance: WARFARIN
     Route: 050
  14. SIMVASTATIN. [Concomitant]
     Active Substance: SIMVASTATIN
     Route: 050
  15. TRAJENTA [Concomitant]
     Active Substance: LINAGLIPTIN
     Route: 050
  16. ALDACTONE [Concomitant]
     Active Substance: SPIRONOLACTONE
     Route: 050
  17. INSULIN [Concomitant]
     Active Substance: INSULIN NOS

REACTIONS (8)
  - Pathogen resistance [Unknown]
  - Iron deficiency anaemia [Unknown]
  - Device loosening [Unknown]
  - Pneumonia aspiration [Unknown]
  - Intracranial infection [Unknown]
  - Hypernatraemia [Unknown]
  - Arthritis infective [Unknown]
  - Acute kidney injury [Unknown]

NARRATIVE: CASE EVENT DATE: 20200505
